FAERS Safety Report 12581091 (Version 1)
Quarter: 2016Q3

REPORT INFORMATION
  Report Type: Report from Study
  Country: CO (occurrence: CO)
  Receive Date: 20160721
  Receipt Date: 20160721
  Transmission Date: 20161109
  Serious: Yes (Other)
  Sender: FDA-Public Use
  Company Number: CO-ABBVIE-16K-036-1680191-00

PATIENT
  Age: 52 Year
  Sex: Male
  Weight: 103 kg

DRUGS (2)
  1. DANDELION [Concomitant]
     Active Substance: TARAXACUM OFFICINALE POLLEN
     Indication: PRODUCT USED FOR UNKNOWN INDICATION
     Route: 048
  2. HUMIRA [Suspect]
     Active Substance: ADALIMUMAB
     Indication: PSORIASIS
     Route: 058
     Dates: start: 20150509, end: 20160616

REACTIONS (1)
  - Circumcision [Recovering/Resolving]

NARRATIVE: CASE EVENT DATE: 20160705
